FAERS Safety Report 8454370-8 (Version None)
Quarter: 2012Q2

REPORT INFORMATION
  Report Type: 
  Country: None (occurrence: None)
  Receive Date: 20120621
  Receipt Date: 20120618
  Transmission Date: 20120825
  Serious: Yes (Other)
  Sender: FDA-Public Use
  Company Number: AU-AMGEN-AUSSP2012037654

PATIENT

DRUGS (3)
  1. ETOPOSIDE [Concomitant]
     Indication: GERM CELL CANCER
  2. NEULASTA [Suspect]
     Indication: NEUTROPENIA
  3. BLEOMYCIN [Concomitant]
     Indication: GERM CELL CANCER

REACTIONS (2)
  - PANCYTOPENIA [None]
  - NO THERAPEUTIC RESPONSE [None]
